FAERS Safety Report 15011242 (Version 1)
Quarter: 2018Q2

REPORT INFORMATION
  Report Type: Spontaneous
  Country: US (occurrence: US)
  Receive Date: 20180117
  Receipt Date: 20180117
  Transmission Date: 20180711
  Serious: No
  Sender: FDA-Public Use
  Company Number: US-KEDRION-2018-5

PATIENT
  Age: 27 Year
  Sex: Female

DRUGS (1)
  1. RHOGAM [Suspect]
     Active Substance: HUMAN RHO(D) IMMUNE GLOBULIN
     Indication: ABORTION SPONTANEOUS
     Dates: start: 201710

REACTIONS (2)
  - Incorrect route of drug administration [Unknown]
  - Rhesus antibodies [Unknown]

NARRATIVE: CASE EVENT DATE: 201710
